FAERS Safety Report 8470664-4 (Version None)
Quarter: 2012Q2

REPORT INFORMATION
  Report Type: 
  Country: None (occurrence: None)
  Receive Date: 20120627
  Receipt Date: 20120626
  Transmission Date: 20120825
  Serious: Yes (Hospitalization, Other)
  Sender: FDA-Public Use
  Company Number: PHEH2009US03937

PATIENT
  Sex: Female

DRUGS (80)
  1. ZOMETA [Suspect]
     Indication: BREAST CANCER METASTATIC
  2. ZYRTEC [Concomitant]
  3. AMBIEN [Concomitant]
     Dosage: 1 DF, QHS
  4. ADENOSINE [Concomitant]
  5. DIOVAN [Concomitant]
  6. DILAUDID [Concomitant]
  7. METFORMIN HYDROCHLORIDE [Concomitant]
     Dosage: 1000 MG, BID
  8. ACCUPRIL [Concomitant]
     Dosage: 20 MG, QD
  9. AMPICILLIN [Concomitant]
     Dosage: 100 MG, UNK
     Route: 042
  10. GABAPENTIN [Concomitant]
     Dosage: 100 MG, UNK
  11. FENTANYL [Concomitant]
     Dosage: 100 UG, UNK
  12. CHLORZOXAZONE [Concomitant]
  13. DEMADEX [Concomitant]
     Dosage: 20 MG
  14. NORCO [Concomitant]
  15. OXYCODONE HCL [Concomitant]
     Dosage: 40 MG, BID
  16. COLACE [Concomitant]
     Dosage: 100 MG, BID
  17. CETIRIZINE [Concomitant]
     Indication: HYPERSENSITIVITY
     Dosage: 10 MG, UNK
  18. MOBIC [Concomitant]
     Dosage: 7.5 MG, BID
  19. LIQUIBID [Concomitant]
     Dosage: 600 MG, BID
  20. DEMEROL [Concomitant]
     Dosage: 62.5 MG, UNK
  21. ACIDOPHILUS ^ZYMA^ [Concomitant]
     Route: 048
  22. INSULIN [Concomitant]
  23. ZANTAC [Concomitant]
  24. LEXAPRO [Concomitant]
  25. CARDIZEM [Concomitant]
  26. MUCINEX [Concomitant]
  27. RESTORIL [Concomitant]
  28. CIPROFLOXACIN HCL [Concomitant]
  29. MEGESTROL ACETATE [Concomitant]
  30. MELOXICAM [Concomitant]
  31. CHEMOTHERAPEUTICS [Concomitant]
     Dates: start: 20080512
  32. CINNAMON [Concomitant]
     Dosage: 1 DF, BID
  33. ASPIRIN [Concomitant]
  34. ASCORBIC ACID [Concomitant]
  35. PARAFON FORTE [Concomitant]
  36. NAPROXEN (ALEVE) [Concomitant]
     Indication: DIABETES MELLITUS
     Dosage: 500 MG, UNK
  37. AMARYL [Concomitant]
     Dosage: 14 MG, BID
  38. VERSED [Concomitant]
     Dosage: 4 MG, UNK
  39. GENTAMICIN [Concomitant]
     Dosage: 80 MG, UNK
     Route: 042
  40. ZOMETA [Suspect]
     Indication: METASTATIC NEOPLASM
     Dosage: 4 MG, QMO
     Route: 042
     Dates: start: 20061001
  41. LASIX [Concomitant]
     Dosage: 1 DF, QD
  42. GLUCOPHAGE [Concomitant]
     Dosage: 1 DF, BID
  43. NYSTATIN [Concomitant]
     Dosage: 5 ML, QID
  44. DARVOCET-N 50 [Concomitant]
  45. PROAIR HFA [Concomitant]
  46. DIFLUCAN [Concomitant]
     Dosage: 150 MG, UNK
  47. LEVAQUIN [Concomitant]
  48. LOVENOX [Concomitant]
     Dosage: 40 MG, QD
  49. NOVOLOG [Concomitant]
  50. LEVEMIR [Concomitant]
  51. ACCUPRIL [Concomitant]
  52. METOLAZONE [Concomitant]
     Dosage: 1 DF, QOD
  53. MORPHINE [Concomitant]
  54. LANTUS [Concomitant]
     Dosage: 40 MG, UNK
  55. FOSAMAX [Suspect]
  56. FASLODEX [Concomitant]
  57. LORTAB [Concomitant]
  58. AVANDIA [Concomitant]
  59. ANCEF [Concomitant]
  60. OXYCONTIN [Concomitant]
  61. HORMONES NOS [Concomitant]
  62. FLUCONAZOLE [Concomitant]
  63. KLOR-CON [Concomitant]
  64. MAGNESIUM OXIDE [Concomitant]
     Dosage: 400 MG, QD
  65. CARDIOLITE [Concomitant]
  66. NOLVADEX [Concomitant]
  67. KEFLEX [Concomitant]
  68. PERCOCET [Concomitant]
  69. MEGACE [Concomitant]
     Dosage: 40 MG, UNK
  70. CRESTOR [Concomitant]
     Dosage: 10 MG, UNK
  71. AROMASIN [Concomitant]
     Dosage: 25 MG, UNK
  72. DEXTROMETHORPHAN HYDROBROMIDE [Concomitant]
  73. NEXIUM [Concomitant]
     Dosage: 40 MG, UNK
  74. METFORMIN HCL [Concomitant]
  75. CYMBALTA [Concomitant]
     Dosage: 60 MG BID
  76. PRANDIN [Concomitant]
     Dosage: 2 MG, TID
  77. COVERA-HS [Concomitant]
  78. LACTULOSE [Concomitant]
  79. ALLEGRA [Concomitant]
     Dosage: 180 MG, UNK
  80. TUSSIN [Concomitant]

REACTIONS (99)
  - BRONCHITIS [None]
  - SEASONAL ALLERGY [None]
  - VITAMIN D DECREASED [None]
  - CHRONIC SINUSITIS [None]
  - HYPOKALAEMIA [None]
  - SWELLING FACE [None]
  - NECK INJURY [None]
  - CHRONIC OBSTRUCTIVE PULMONARY DISEASE [None]
  - INTERVERTEBRAL DISC DEGENERATION [None]
  - NEOPLASM PROGRESSION [None]
  - TENOSYNOVITIS STENOSANS [None]
  - SKIN DISORDER [None]
  - TENDONITIS [None]
  - FALL [None]
  - HEAD INJURY [None]
  - HYPERMETABOLISM [None]
  - DEVICE MALFUNCTION [None]
  - OEDEMA [None]
  - CARDIAC MURMUR [None]
  - MUMPS [None]
  - SCARLET FEVER [None]
  - PNEUMONIA [None]
  - HAEMORRHOIDS [None]
  - GOITRE [None]
  - PAIN IN EXTREMITY [None]
  - OEDEMA PERIPHERAL [None]
  - DIVERTICULUM INTESTINAL [None]
  - POLLAKIURIA [None]
  - OSTEOARTHRITIS [None]
  - SLEEP APNOEA SYNDROME [None]
  - TRANSIENT ISCHAEMIC ATTACK [None]
  - TOOTH INFECTION [None]
  - VISION BLURRED [None]
  - LYMPHOMA [None]
  - OSTEONECROSIS OF JAW [None]
  - ANHEDONIA [None]
  - ARTHRITIS [None]
  - OSTEITIS [None]
  - CONSTIPATION [None]
  - GINGIVAL PAIN [None]
  - HEPATIC STEATOSIS [None]
  - EXOSTOSIS [None]
  - LIGAMENT INJURY [None]
  - RETINAL TEAR [None]
  - BONE LOSS [None]
  - GASTROOESOPHAGEAL REFLUX DISEASE [None]
  - CARDIOMEGALY [None]
  - CARPAL TUNNEL SYNDROME [None]
  - LUNG NEOPLASM MALIGNANT [None]
  - RENAL FAILURE CHRONIC [None]
  - TOOTHACHE [None]
  - INJURY [None]
  - BONE LESION [None]
  - BACK PAIN [None]
  - CHOLELITHIASIS [None]
  - OSTEOPENIA [None]
  - PATHOLOGICAL FRACTURE [None]
  - ORAL INFECTION [None]
  - ARTERIOSCLEROSIS CORONARY ARTERY [None]
  - GINGIVAL ERYTHEMA [None]
  - PERIPHERAL SENSORY NEUROPATHY [None]
  - CONTUSION [None]
  - JOINT SWELLING [None]
  - CARDIAC FAILURE CONGESTIVE [None]
  - FLUID OVERLOAD [None]
  - CANDIDIASIS [None]
  - DEEP VEIN THROMBOSIS [None]
  - DEPRESSION [None]
  - NODULE [None]
  - ARRHYTHMIA [None]
  - ATRIAL FIBRILLATION [None]
  - PAIN IN JAW [None]
  - INTERVERTEBRAL DISC SPACE NARROWING [None]
  - TYPE 1 DIABETES MELLITUS [None]
  - DISABILITY [None]
  - ANXIETY [None]
  - NEPHROLITHIASIS [None]
  - KIDNEY INFECTION [None]
  - ASTHMA [None]
  - URTICARIA [None]
  - DYSPNOEA EXERTIONAL [None]
  - LYMPHOEDEMA [None]
  - ACETABULUM FRACTURE [None]
  - SPINAL OSTEOARTHRITIS [None]
  - MITRAL VALVE PROLAPSE [None]
  - CATARACT [None]
  - PAIN [None]
  - METASTASES TO BONE [None]
  - RUBELLA [None]
  - RECTAL POLYP [None]
  - OSTEOPOROSIS [None]
  - ABDOMINAL PAIN [None]
  - RASH [None]
  - SCOLIOSIS [None]
  - FACET JOINT SYNDROME [None]
  - HAEMATOMA [None]
  - NEOPLASM MALIGNANT [None]
  - HYPERLIPIDAEMIA [None]
  - GAIT DISTURBANCE [None]
